FAERS Safety Report 17129240 (Version 1)
Quarter: 2019Q4

REPORT INFORMATION
  Report Type: Spontaneous
  Country: IT (occurrence: IT)
  Receive Date: 20191209
  Receipt Date: 20191209
  Transmission Date: 20200122
  Serious: Yes (Other)
  Sender: FDA-Public Use
  Company Number: IT-SAMSUNG BIOEPIS-SB-2019-35817

PATIENT
  Age: 72 Year
  Sex: Female
  Weight: 75 kg

DRUGS (4)
  1. BLOPRESS (TAKEDA ITALIA S.P.A.) (C09CA06) [Concomitant]
     Indication: HYPERTENSION
     Dosage: UNKNOWN
     Route: 065
     Dates: end: 20190331
  2. IMRALDI [Suspect]
     Active Substance: ADALIMUMAB
     Indication: PSORIATIC ARTHROPATHY
     Route: 058
     Dates: start: 20181126, end: 20190414
  3. REUMAFLEX [Concomitant]
     Indication: PSORIATIC ARTHROPATHY
     Route: 058
     Dates: start: 20170101, end: 20190416
  4. LOBIVON [Concomitant]
     Active Substance: NEBIVOLOL HYDROCHLORIDE
     Indication: HYPERTENSION
     Dosage: UNKNOWN
     Route: 048
     Dates: end: 20190416

REACTIONS (2)
  - Condition aggravated [Not Recovered/Not Resolved]
  - Drug ineffective [Not Recovered/Not Resolved]

NARRATIVE: CASE EVENT DATE: 20181201
